FAERS Safety Report 24452469 (Version 1)
Quarter: 2024Q4

REPORT INFORMATION
  Report Type: Spontaneous
  Country: US (occurrence: US)
  Receive Date: 20241017
  Receipt Date: 20241017
  Transmission Date: 20250114
  Serious: No
  Sender: SUNOVION
  Company Number: US-UROVANT SCIENCES GMBH-202403-URV-000290

PATIENT
  Sex: Female

DRUGS (2)
  1. GEMTESA [Suspect]
     Active Substance: VIBEGRON
     Indication: Hypertonic bladder
     Dosage: UNK, QD
     Route: 048
  2. GEMTESA [Suspect]
     Active Substance: VIBEGRON
     Dosage: UNK, PRN
     Route: 048

REACTIONS (3)
  - Inappropriate schedule of product administration [Unknown]
  - Back pain [Recovered/Resolved]
  - Inability to afford medication [Unknown]
